FAERS Safety Report 15813059 (Version 5)
Quarter: 2019Q1

REPORT INFORMATION
  Report Type: Spontaneous
  Country: CA (occurrence: CA)
  Receive Date: 20190111
  Receipt Date: 20190212
  Transmission Date: 20190417
  Serious: Yes (Hospitalization, Other)
  Sender: FDA-Public Use
  Company Number: CA-PFIZER INC-2019008130

PATIENT
  Age: 54 Year
  Sex: Male

DRUGS (2)
  1. REPLAGAL [Concomitant]
     Active Substance: AGALSIDASE ALFA
     Indication: FABRY^S DISEASE
     Dosage: UNK (10 YEARS AFTER STARTING ERT, CONCURRENT REDUCTION)
  2. AMIODARONE HCL [Suspect]
     Active Substance: AMIODARONE HYDROCHLORIDE
     Indication: ATRIAL FIBRILLATION
     Dosage: UNK (LOADING DOSE)
     Route: 048

REACTIONS (3)
  - Toxicity to various agents [Recovered/Resolved]
  - Cardiac failure acute [Recovered/Resolved]
  - Biopsy heart abnormal [Unknown]
